FAERS Safety Report 8900443 (Version 1)
Quarter: 2012Q4

REPORT INFORMATION
  Report Type: 
  Country: GR (occurrence: GR)
  Receive Date: 20121109
  Receipt Date: 20121109
  Transmission Date: 20130627
  Serious: Yes (Other)
  Sender: FDA-Public Use
  Company Number: PHHY2012GR102662

PATIENT
  Age: 67 Year
  Sex: Male

DRUGS (1)
  1. GLIVEC [Suspect]

REACTIONS (2)
  - Priapism [Unknown]
  - Drug ineffective [Unknown]
